FAERS Safety Report 17780579 (Version 2)
Quarter: 2020Q2

REPORT INFORMATION
  Report Type: Report from Study
  Country: None (occurrence: BR)
  Receive Date: 20200513
  Receipt Date: 20200513
  Transmission Date: 20200714
  Serious: Yes (Death, Hospitalization, Other)
  Sender: FDA-Public Use
  Company Number: BR-ABBVIE-20K-020-3401633-00

PATIENT
  Age: 46 Year
  Sex: Female
  Weight: 49 kg

DRUGS (5)
  1. HUMIRA [Suspect]
     Active Substance: ADALIMUMAB
     Indication: RHEUMATOID ARTHRITIS
     Route: 058
     Dates: start: 201911
  2. CARBAMAZEPINE. [Concomitant]
     Active Substance: CARBAMAZEPINE
     Indication: PRODUCT USED FOR UNKNOWN INDICATION
     Route: 048
     Dates: start: 1990
  3. IBUPROFEN. [Suspect]
     Active Substance: IBUPROFEN
     Indication: THROAT IRRITATION
     Route: 048
     Dates: start: 20200224, end: 20200224
  4. GARDENAL [Concomitant]
     Active Substance: PHENOBARBITAL
     Indication: PRODUCT USED FOR UNKNOWN INDICATION
     Route: 048
     Dates: start: 1990
  5. IBUPROFEN. [Suspect]
     Active Substance: IBUPROFEN
     Indication: COUGH

REACTIONS (11)
  - Weight decreased [Not Recovered/Not Resolved]
  - Throat irritation [Not Recovered/Not Resolved]
  - Lung disorder [Fatal]
  - Cough [Not Recovered/Not Resolved]
  - Injection site erythema [Recovered/Resolved]
  - Pneumonia [Not Recovered/Not Resolved]
  - Infection [Fatal]
  - Pharyngeal disorder [Fatal]
  - Dyspnoea [Not Recovered/Not Resolved]
  - Anaemia [Not Recovered/Not Resolved]
  - Injection site papule [Recovered/Resolved]

NARRATIVE: CASE EVENT DATE: 202002
